FAERS Safety Report 6240754-5 (Version None)
Quarter: 2009Q2

REPORT INFORMATION
  Report Type: 
  Country: None (occurrence: None)
  Receive Date: 20090623
  Receipt Date: 20090611
  Transmission Date: 20091009
  Serious: Yes (Other)
  Sender: FDA-Public Use
  Company Number: AU-PFIZER INC-2009226073

PATIENT
  Age: 66 Year

DRUGS (3)
  1. LYRICA [Suspect]
     Indication: NEURALGIA
     Dosage: 75 MG, 2X/DAY
     Dates: start: 20090201
  2. MORPHINE HCL ELIXIR [Suspect]
     Indication: PAIN
     Dosage: 60 MG, 1X/DAY
  3. MORPHINE HCL ELIXIR [Suspect]
     Dosage: 150 MG, 1X/DAY
     Dates: start: 20090201

REACTIONS (10)
  - DECREASED APPETITE [None]
  - DEFAECATION URGENCY [None]
  - DRUG INEFFECTIVE [None]
  - DRY THROAT [None]
  - DYSPNOEA [None]
  - HYPOAESTHESIA [None]
  - PSYCHOMOTOR HYPERACTIVITY [None]
  - SCREAMING [None]
  - SUICIDAL IDEATION [None]
  - WITHDRAWAL SYNDROME [None]
